FAERS Safety Report 5384835-7 (Version None)
Quarter: 2007Q3

REPORT INFORMATION
  Report Type: 
  Country: None (occurrence: None)
  Receive Date: 20070706
  Receipt Date: 20070521
  Transmission Date: 20080115
  Serious: No
  Sender: FDA-Public Use
  Company Number: PHEH2007US07807

PATIENT
  Age: 64 Year
  Sex: Male

DRUGS (1)
  1. TEKTURNA [Suspect]
     Indication: HYPERTENSION
     Dosage: 150 MG, QD, ORAL
     Route: 048
     Dates: start: 20070501, end: 20070501

REACTIONS (3)
  - GINGIVAL PAIN [None]
  - LIP PAIN [None]
  - NASAL DISCOMFORT [None]
